FAERS Safety Report 9853942 (Version 2)
Quarter: 2014Q1

REPORT INFORMATION
  Report Type: Spontaneous
  Country: US (occurrence: US)
  Receive Date: 20140129
  Receipt Date: 20140210
  Transmission Date: 20141002
  Serious: No
  Sender: FDA-Public Use
  Company Number: US-PFIZER INC-2014027794

PATIENT
  Age: 59 Year
  Sex: Female
  Weight: 86.17 kg

DRUGS (1)
  1. EFFEXOR XR [Suspect]
     Indication: DEPRESSION
     Dosage: 300 MG (2 CAPSULE OF 150 MG IN THE MORNING), 1X/DAY
     Route: 048
     Dates: end: 20140127

REACTIONS (10)
  - Malaise [Unknown]
  - Irritability [Unknown]
  - Anxiety [Unknown]
  - Drug withdrawal syndrome [Unknown]
  - Crying [Unknown]
  - Insomnia [Unknown]
  - Retching [Unknown]
  - Feeling abnormal [Unknown]
  - Aphonia [Unknown]
  - Feeling abnormal [Unknown]
